FAERS Safety Report 5362508-4 (Version None)
Quarter: 2007Q2

REPORT INFORMATION
  Report Type: 
  Country: None (occurrence: None)
  Receive Date: 20070619
  Receipt Date: 20070615
  Transmission Date: 20071010
  Serious: Yes (Other)
  Sender: FDA-Public Use
  Company Number: RU-SHR-RU-2007-022494

PATIENT
  Age: 41 Year
  Sex: Male

DRUGS (1)
  1. ULTRAVIST 300 [Suspect]
     Indication: ANGIOGRAM CEREBRAL
     Dosage: 150-200 ML, 1 DOSE
     Route: 040
     Dates: start: 20070614, end: 20070614

REACTIONS (1)
  - DRUG TOXICITY [None]
